FAERS Safety Report 12010713 (Version 1)
Quarter: 2016Q1

REPORT INFORMATION
  Report Type: Spontaneous
  Country: SE (occurrence: SE)
  Receive Date: 20160205
  Receipt Date: 20160205
  Transmission Date: 20160526
  Serious: Yes (Other)
  Sender: FDA-Public Use
  Company Number: SE-PFIZER INC-2016062190

PATIENT
  Age: 66 Year
  Sex: Female

DRUGS (14)
  1. SPIRIVA [Concomitant]
     Active Substance: TIOTROPIUM BROMIDE MONOHYDRATE
     Dosage: UNK
  2. ENALAPRIL ACTAVIS [Concomitant]
     Active Substance: ENALAPRIL
     Dosage: UNK
  3. CHAMPIX [Suspect]
     Active Substance: VARENICLINE TARTRATE
     Indication: SMOKING CESSATION THERAPY
     Dosage: UNK
     Route: 048
     Dates: start: 20160118, end: 20160122
  4. KALCIPOS-D [Concomitant]
     Active Substance: CALCIUM CARBONATE\CHOLECALCIFEROL
     Dosage: UNK
  5. COMBIVENT [Concomitant]
     Active Substance: ALBUTEROL SULFATE\IPRATROPIUM BROMIDE
     Dosage: UNK
  6. BRICANYL [Concomitant]
     Active Substance: TERBUTALINE SULFATE
     Dosage: UNK
  7. SYMBICORT [Concomitant]
     Active Substance: BUDESONIDE\FORMOTEROL FUMARATE DIHYDRATE
     Dosage: UNK
  8. BETNOVAT [Concomitant]
     Active Substance: BETAMETHASONE
     Dosage: UNK
  9. TAMOXIFEN MYLAN [Concomitant]
     Active Substance: TAMOXIFEN
     Dosage: UNK
  10. DAKTACORT [Concomitant]
     Active Substance: HYDROCORTISONE\MICONAZOLE NITRATE
     Dosage: UNK
  11. ALENDRONAT TEVA [Concomitant]
     Dosage: UNK
  12. TRADOLAN [Concomitant]
     Active Substance: TRAMADOL
     Dosage: UNK
  13. IMOVANE [Concomitant]
     Active Substance: ZOPICLONE
     Dosage: UNK
  14. ACETYLCYSTEIN ALTERNOVA [Concomitant]
     Dosage: UNK

REACTIONS (2)
  - Dyspnoea [Recovered/Resolved]
  - Local swelling [Recovered/Resolved]

NARRATIVE: CASE EVENT DATE: 20160120
